FAERS Safety Report 10591169 (Version 1)
Quarter: 2014Q4

REPORT INFORMATION
  Report Type: Spontaneous
  Country: JP (occurrence: JP)
  Receive Date: 20141118
  Receipt Date: 20141118
  Transmission Date: 20150529
  Serious: Yes (Other)
  Sender: FDA-Public Use
  Company Number: JP-PFIZER INC-2014311694

PATIENT
  Age: 79 Year
  Sex: Female

DRUGS (7)
  1. MICAFUNGIN [Suspect]
     Active Substance: MICAFUNGIN
     Dosage: 150 MG, 1X/DAY
     Route: 042
     Dates: start: 201303
  2. AMPHOTERICIN B. [Suspect]
     Active Substance: AMPHOTERICIN B
     Dosage: 100 MG, 1X/DAY
     Route: 042
     Dates: start: 201303
  3. VANCOMYCIN [Concomitant]
     Active Substance: VANCOMYCIN
     Dosage: 20 UG/ML, UNK
     Dates: start: 201303
  4. VORICONAZOLE. [Suspect]
     Active Substance: VORICONAZOLE
     Dosage: 200 MG, 1X/DAY
     Route: 048
  5. AMPHOTERICIN B. [Suspect]
     Active Substance: AMPHOTERICIN B
     Dosage: 5 UG/ML, UNK
     Dates: start: 201303
  6. MICAFUNGIN [Suspect]
     Active Substance: MICAFUNGIN
     Dosage: 2 UG/ML, UNK
     Dates: start: 201303
  7. CEFTAZIDIME. [Concomitant]
     Active Substance: CEFTAZIDIME
     Dosage: 40 UG/ML, UNK
     Dates: start: 201303

REACTIONS (6)
  - No therapeutic response [Unknown]
  - Visual acuity reduced [Unknown]
  - Pancytopenia [Unknown]
  - Macular oedema [Recovered/Resolved]
  - Hypokalaemia [Unknown]
  - Oedema [Unknown]

NARRATIVE: CASE EVENT DATE: 201304
